FAERS Safety Report 7277219-8 (Version None)
Quarter: 2011Q1

REPORT INFORMATION
  Report Type: 
  Country: None (occurrence: None)
  Receive Date: 20110111
  Receipt Date: 20110111
  Transmission Date: 20110831
  Serious: No
  Sender: FDA-Public Use
  Company Number: None

PATIENT
  Age: 46 Day
  Sex: Female
  Weight: 49.8957 kg

DRUGS (3)
  1. TRIAD STERILE ALCOHOL PREP PAD 1 ALCOHOL PAD PER INJECTION DAILY TRIAD [Suspect]
  2. COPAXONE [Concomitant]
  3. TRIAD STERILE ALCOHOL PREP PAD 1 ALCOHOL PAD PER INJECTION DAILY TRIAD [Suspect]

REACTIONS (6)
  - RASH PRURITIC [None]
  - INSOMNIA [None]
  - SKIN DISORDER [None]
  - PAIN OF SKIN [None]
  - PURPURA [None]
  - HYPERAESTHESIA [None]
